FAERS Safety Report 21806453 (Version 1)
Quarter: 2023Q1

REPORT INFORMATION
  Report Type: Report from Study
  Country: US (occurrence: US)
  Receive Date: 20230102
  Receipt Date: 20230102
  Transmission Date: 20230417
  Serious: No
  Sender: FDA-Public Use
  Company Number: US-ABBVIE-4224178

PATIENT
  Sex: Female

DRUGS (1)
  1. HUMIRA [Suspect]
     Active Substance: ADALIMUMAB
     Indication: Crohn^s disease
     Route: 058
     Dates: start: 202111, end: 202201

REACTIONS (5)
  - Drug hypersensitivity [Unknown]
  - Urticaria [Unknown]
  - Rash papular [Unknown]
  - Abdominal distension [Unknown]
  - Psoriasis [Unknown]
